FAERS Safety Report 11374876 (Version 2)
Quarter: 2015Q3

REPORT INFORMATION
  Report Type: Report from Study
  Country: CA (occurrence: CA)
  Receive Date: 20150813
  Receipt Date: 20150915
  Transmission Date: 20151125
  Serious: Yes (Hospitalization, Other)
  Sender: FDA-Public Use
  Company Number: PHHY2012CA102381

PATIENT
  Age: 35 Year
  Sex: Female

DRUGS (1)
  1. GILENYA [Suspect]
     Active Substance: FINGOLIMOD HYDROCHLORIDE
     Indication: RELAPSING-REMITTING MULTIPLE SCLEROSIS
     Dosage: 0.5 MG, QD
     Route: 048
     Dates: start: 20120925, end: 20150811

REACTIONS (9)
  - Lymphocyte count decreased [Not Recovered/Not Resolved]
  - Sinusitis [Recovered/Resolved]
  - Bipolar disorder [Unknown]
  - Limb discomfort [Unknown]
  - Conjunctivitis [Recovered/Resolved]
  - Tonsillitis [Recovered/Resolved]
  - Pyrexia [Recovered/Resolved]
  - Cough [Recovered/Resolved]
  - Concomitant disease aggravated [Unknown]

NARRATIVE: CASE EVENT DATE: 20120925
